FAERS Safety Report 16715462 (Version 1)
Quarter: 2019Q3

REPORT INFORMATION
  Report Type: Spontaneous
  Country: US (occurrence: US)
  Receive Date: 20190816
  Receipt Date: 20190816
  Transmission Date: 20191005
  Serious: Yes (Hospitalization)
  Sender: FDA-Public Use
  Company Number: None

PATIENT
  Age: 45 Year
  Sex: Female

DRUGS (15)
  1. FOLIC ACID. [Concomitant]
     Active Substance: FOLIC ACID
  2. PREDNISONE. [Concomitant]
     Active Substance: PREDNISONE
  3. SPRYCEL [Suspect]
     Active Substance: DASATINIB
     Indication: CHRONIC MYELOID LEUKAEMIA
     Route: 048
     Dates: start: 20180907
  4. AMITRIPTYLIN [Concomitant]
     Active Substance: AMITRIPTYLINE
  5. ARMOUR THYROID [Concomitant]
     Active Substance: THYROID, PORCINE
  6. FUROSEMIDE. [Concomitant]
     Active Substance: FUROSEMIDE
  7. VITAMIN D [Concomitant]
     Active Substance: VITAMIN D NOS
  8. ALLOPURINOL. [Concomitant]
     Active Substance: ALLOPURINOL
  9. POTASSIUM [Concomitant]
     Active Substance: POTASSIUM
  10. TIZANDINE [Concomitant]
     Active Substance: TIZANIDINE
  11. ZOFRAN [Concomitant]
     Active Substance: ONDANSETRON HYDROCHLORIDE
  12. DILTIAZEM. [Concomitant]
     Active Substance: DILTIAZEM
  13. FENOFIBRATE. [Concomitant]
     Active Substance: FENOFIBRATE
  14. GABAPENTIN. [Concomitant]
     Active Substance: GABAPENTIN
  15. METHOTREXATE. [Concomitant]
     Active Substance: METHOTREXATE

REACTIONS (1)
  - Pleural effusion [None]
